FAERS Safety Report 7621047-8 (Version None)
Quarter: 2011Q3

REPORT INFORMATION
  Report Type: 
  Country: None (occurrence: None)
  Receive Date: 20110719
  Receipt Date: 20110224
  Transmission Date: 20111222
  Serious: No
  Sender: FDA-Public Use
  Company Number: US-KINGPHARMUSA00001-K201100207

PATIENT
  Sex: Male
  Weight: 81.633 kg

DRUGS (5)
  1. PREDNISONE [Concomitant]
     Dosage: UNK
  2. TESTOSTERONE [Concomitant]
     Dosage: UNK
  3. VITAMIN D [Concomitant]
     Dosage: UNK
  4. LEVOXYL [Suspect]
     Dosage: 150 MCG, QD
     Route: 048
     Dates: start: 20080101
  5. CORTEF [Concomitant]
     Dosage: UNK

REACTIONS (5)
  - MALAISE [None]
  - WEIGHT INCREASED [None]
  - FATIGUE [None]
  - FEELING ABNORMAL [None]
  - BLOOD THYROID STIMULATING HORMONE INCREASED [None]
